FAERS Safety Report 25377009 (Version 2)
Quarter: 2025Q2

REPORT INFORMATION
  Report Type: Spontaneous
  Country: US (occurrence: US)
  Receive Date: 20250530
  Receipt Date: 20250618
  Transmission Date: 20250717
  Serious: Yes (Other)
  Sender: INTERCEPT PHARMACEUTICALS
  Company Number: US-INTERCEPT-PM2025000961

PATIENT
  Sex: Female
  Weight: 65.3 kg

DRUGS (11)
  1. OCALIVA [Suspect]
     Active Substance: OBETICHOLIC ACID
     Indication: Primary biliary cholangitis
     Dosage: 5 MILLIGRAM, QD
     Route: 048
     Dates: start: 20161109
  2. OCALIVA [Suspect]
     Active Substance: OBETICHOLIC ACID
     Dosage: 10 MILLIGRAM, QD
     Route: 048
     Dates: start: 20181228, end: 202109
  3. OCALIVA [Suspect]
     Active Substance: OBETICHOLIC ACID
     Dosage: 5 MILLIGRAM, 3X/WK
     Route: 048
  4. OCALIVA [Suspect]
     Active Substance: OBETICHOLIC ACID
     Dosage: 5 MILLIGRAM, QD
     Route: 048
  5. OCALIVA [Suspect]
     Active Substance: OBETICHOLIC ACID
     Dosage: 5 MILLIGRAM, 3X/WK
     Route: 048
     Dates: start: 2025, end: 2025
  6. URSODIOL [Concomitant]
     Active Substance: URSODIOL
     Indication: Primary biliary cholangitis
  7. BUPROPION [Concomitant]
     Active Substance: BUPROPION
  8. CALCIUM ACETATE [Concomitant]
     Active Substance: CALCIUM ACETATE
  9. VITAMINS [Concomitant]
     Active Substance: VITAMINS
  10. OMEPRAZOLE [Concomitant]
     Active Substance: OMEPRAZOLE
  11. VITAMIN D NOS [Concomitant]
     Active Substance: CHOLECALCIFEROL\ERGOCALCIFEROL

REACTIONS (15)
  - Major depression [Unknown]
  - Gastric ulcer [Unknown]
  - Sjogren^s syndrome [Not Recovered/Not Resolved]
  - Osteopenia [Unknown]
  - Stress [Not Recovered/Not Resolved]
  - Abdominal distension [Not Recovered/Not Resolved]
  - Hepatic steatosis [Recovered/Resolved]
  - Gastric bypass [Recovered/Resolved]
  - Weight decreased [Unknown]
  - Candida infection [Unknown]
  - Alanine aminotransferase abnormal [Recovered/Resolved]
  - Aspartate aminotransferase abnormal [Recovered/Resolved]
  - Blood alkaline phosphatase abnormal [Not Recovered/Not Resolved]
  - Pruritus [Unknown]
  - Off label use [Recovered/Resolved]

NARRATIVE: CASE EVENT DATE: 20210101
